FAERS Safety Report 7236933-0 (Version None)
Quarter: 2011Q1

REPORT INFORMATION
  Report Type: 
  Country: None (occurrence: None)
  Receive Date: 20110121
  Receipt Date: 20110113
  Transmission Date: 20110831
  Serious: Yes (Other)
  Sender: FDA-Public Use
  Company Number: US-ASTRAZENECA-2011SE02438

PATIENT
  Age: 743 Month
  Sex: Female

DRUGS (5)
  1. CLONAZEPAM [Concomitant]
     Dates: start: 20041201
  2. SEROQUEL [Suspect]
     Route: 048
     Dates: start: 20041201
  3. MOBIC [Concomitant]
     Dates: start: 20041201
  4. PREMARIN [Concomitant]
     Dates: start: 20041201
  5. FUROSEMIDE [Concomitant]
     Dates: start: 20041101

REACTIONS (7)
  - BACK PAIN [None]
  - MUSCULOSKELETAL PAIN [None]
  - ARTHRALGIA [None]
  - NECK PAIN [None]
  - PAIN IN EXTREMITY [None]
  - NEUROPATHY PERIPHERAL [None]
  - TYPE 2 DIABETES MELLITUS [None]
